FAERS Safety Report 10641150 (Version 1)
Quarter: 2014Q4

REPORT INFORMATION
  Report Type: Spontaneous
  Country: CO (occurrence: None)
  Receive Date: 20141208
  Receipt Date: 20141208
  Transmission Date: 20150529
  Serious: Yes (Death, Hospitalization, Other)
  Sender: FDA-Public Use
  Company Number: CO2014GSK030406

PATIENT
  Age: 33 Year
  Sex: Male

DRUGS (3)
  1. LOPINAVIR [Concomitant]
     Active Substance: LOPINAVIR
  2. CELSENTRI (MARAVIROC) UNKNOWN [Suspect]
     Active Substance: MARAVIROC
     Indication: HIV INFECTION
     Dates: start: 201312
  3. ETRAVIRINE [Concomitant]
     Active Substance: ETRAVIRINE

REACTIONS (1)
  - HIV infection CDC Group IV subgroup E [None]
